FAERS Safety Report 21217518 (Version 1)
Quarter: 2022Q3

REPORT INFORMATION
  Report Type: Spontaneous
  Country: CZ (occurrence: CZ)
  Receive Date: 20220816
  Receipt Date: 20220816
  Transmission Date: 20221027
  Serious: Yes (Life-Threatening, Hospitalization)
  Sender: FDA-Public Use
  Company Number: CZ-MYLANLABS-2022M1085878

PATIENT
  Age: 25 Year
  Sex: Female

DRUGS (21)
  1. MONTELUKAST [Suspect]
     Active Substance: MONTELUKAST SODIUM
     Indication: Status asthmaticus
     Dosage: 10 MILLIGRAM, QD
     Route: 048
  2. FENOTEROL\IPRATROPIUM BROMIDE [Suspect]
     Active Substance: FENOTEROL\IPRATROPIUM BROMIDE
     Indication: Asthma
     Dosage: UNK, SEVERAL TIMES A DAY
  3. FENOTEROL\IPRATROPIUM BROMIDE [Suspect]
     Active Substance: FENOTEROL\IPRATROPIUM BROMIDE
     Indication: Status asthmaticus
     Dosage: UNK, CONTINUOUS INHALATION
  4. ALBUTEROL [Suspect]
     Active Substance: ALBUTEROL
     Indication: Status asthmaticus
     Dosage: UNK
  5. METHYLPREDNISOLONE [Suspect]
     Active Substance: METHYLPREDNISOLONE
     Indication: Status asthmaticus
     Dosage: 1000 MILLIGRAM
     Route: 042
  6. METHYLPREDNISOLONE [Suspect]
     Active Substance: METHYLPREDNISOLONE
     Dosage: 1000 MILLIGRAM
     Route: 042
  7. METHYLPREDNISOLONE [Suspect]
     Active Substance: METHYLPREDNISOLONE
     Dosage: 60 MILLIGRAM, FROM DAY 4
     Route: 042
  8. MAGNESIUM SULFATE [Suspect]
     Active Substance: MAGNESIUM SULFATE
     Indication: Status asthmaticus
     Dosage: 2 GRAM
     Route: 042
  9. MAGNESIUM SULFATE [Suspect]
     Active Substance: MAGNESIUM SULFATE
     Dosage: UNK
     Route: 042
  10. TERBUTALINE [Suspect]
     Active Substance: TERBUTALINE
     Indication: Status asthmaticus
     Dosage: 2 MILLIGRAM, QD
     Route: 042
  11. TERBUTALINE [Suspect]
     Active Substance: TERBUTALINE
     Dosage: UNK
     Route: 042
  12. THEOPHYLLINE [Suspect]
     Active Substance: THEOPHYLLINE
     Indication: Status asthmaticus
     Dosage: 720 MILLIGRAM, QD
     Route: 065
  13. THEOPHYLLINE [Suspect]
     Active Substance: THEOPHYLLINE
     Dosage: UNK
     Route: 065
  14. BISULEPIN [Suspect]
     Active Substance: BISULEPIN
     Indication: Status asthmaticus
     Dosage: 2 MILLIGRAM, BID
     Route: 042
  15. SEVOFLURANE [Suspect]
     Active Substance: SEVOFLURANE
     Indication: Status asthmaticus
     Dosage: UNK
  16. EPINEPHRINE [Concomitant]
     Active Substance: EPINEPHRINE
     Indication: Status asthmaticus
     Dosage: 10 MICROGRAM
     Route: 042
  17. KETAMINE [Concomitant]
     Active Substance: KETAMINE
     Indication: Sedation
     Dosage: UNK, 150 MG/HOUR
     Route: 065
  18. SUFENTANIL [Concomitant]
     Active Substance: SUFENTANIL
     Indication: Sedation
     Dosage: UNK, 100 MG/HOUR
     Route: 065
  19. RIBAVIRIN [Concomitant]
     Active Substance: RIBAVIRIN
     Indication: Prophylaxis
     Dosage: 600 MILLIGRAM, BID
     Route: 065
  20. CEFOTAXIME [Concomitant]
     Active Substance: CEFOTAXIME SODIUM
     Indication: Prophylaxis
     Dosage: 2 GRAM, Q6H
     Route: 065
  21. CLARITHROMYCIN [Concomitant]
     Active Substance: CLARITHROMYCIN
     Indication: Prophylaxis
     Dosage: 500 MILLIGRAM, BID
     Route: 065

REACTIONS (2)
  - Drug ineffective [Unknown]
  - Off label use [Unknown]
